FAERS Safety Report 25975340 (Version 1)
Quarter: 2025Q4

REPORT INFORMATION
  Report Type: Spontaneous
  Country: EU (occurrence: EU)
  Receive Date: 20251029
  Receipt Date: 20251029
  Transmission Date: 20260118
  Serious: Yes (Death)
  Sender: VERTEX
  Company Number: EU-VERTEX PHARMACEUTICALS-2025-017723

PATIENT
  Age: 21 Month
  Sex: Male

DRUGS (1)
  1. ORKAMBI [Suspect]
     Active Substance: IVACAFTOR\LUMACAFTOR
     Indication: Cystic fibrosis
     Dosage: 01 PACKET GRANULES (75MG LUMACAFTOR/94 MG IVACAFTOR), BID
     Route: 048
     Dates: start: 20250207, end: 2025

REACTIONS (1)
  - Sepsis [Fatal]

NARRATIVE: CASE EVENT DATE: 20250101
